FAERS Safety Report 9134918 (Version 5)
Quarter: 2013Q2

REPORT INFORMATION
  Report Type: Report from Study
  Country: JP (occurrence: JP)
  Receive Date: 20130304
  Receipt Date: 20130610
  Transmission Date: 20140414
  Serious: Yes (Death)
  Sender: FDA-Public Use
  Company Number: JP-PFIZER INC-2013070941

PATIENT
  Age: 75 Year
  Sex: Male

DRUGS (2)
  1. FOSPHENYTOIN SODIUM [Suspect]
     Indication: STATUS EPILEPTICUS
     Dosage: 750 MG AT 150 MG/MIN IN 0.9% PHYSIOLOGICAL SALINE (1:11)
     Dates: start: 20120909, end: 20120909
  2. FOSPHENYTOIN SODIUM [Suspect]
     Dosage: IN 0.9% SOLUTION (1:36)
     Dates: start: 20120910, end: 20120910

REACTIONS (1)
  - Blood pressure decreased [Fatal]
